FAERS Safety Report 9800198 (Version 1)
Quarter: 2014Q1

REPORT INFORMATION
  Report Type: Spontaneous
  Country: GB (occurrence: GB)
  Receive Date: 20140106
  Receipt Date: 20140106
  Transmission Date: 20141002
  Serious: Yes (Life-Threatening)
  Sender: FDA-Public Use
  Company Number: PHHY2013GB154275

PATIENT
  Sex: Female

DRUGS (1)
  1. CO-AMOXICLAV [Suspect]
     Route: 042
     Dates: start: 20131218

REACTIONS (3)
  - Cardiac arrest [Recovering/Resolving]
  - Dyspnoea [Recovering/Resolving]
  - Chest discomfort [Recovering/Resolving]
